FAERS Safety Report 9163841 (Version 1)
Quarter: 2013Q1

REPORT INFORMATION
  Report Type: Spontaneous
  Country: US (occurrence: US)
  Receive Date: 20130314
  Receipt Date: 20130314
  Transmission Date: 20140127
  Serious: Yes (Other)
  Sender: FDA-Public Use
  Company Number: US-AMGEN-USASP2013015739

PATIENT
  Age: 40 Year
  Sex: 0

DRUGS (2)
  1. XGEVA [Suspect]
     Indication: PRODUCT USED FOR UNKNOWN INDICATION
  2. CHEMOTHERAPEUTICS [Concomitant]

REACTIONS (2)
  - Osteonecrosis of jaw [Unknown]
  - Infection [Unknown]
